FAERS Safety Report 17822075 (Version 3)
Quarter: 2025Q3

REPORT INFORMATION
  Report Type: Spontaneous
  Country: JM (occurrence: JM)
  Receive Date: 20200526
  Receipt Date: 20250716
  Transmission Date: 20251021
  Serious: Yes (Other)
  Sender: NOVARTIS
  Company Number: JM-NOVARTISPH-NVSC2020JM129834

PATIENT
  Sex: Male
  Weight: 93.5 kg

DRUGS (5)
  1. GLIVEC [Suspect]
     Active Substance: IMATINIB MESYLATE
     Indication: Chronic myeloid leukaemia
     Route: 065
     Dates: start: 201502, end: 201909
  2. GLIVEC [Suspect]
     Active Substance: IMATINIB MESYLATE
     Route: 065
     Dates: start: 20191101
  3. GLIVEC [Suspect]
     Active Substance: IMATINIB MESYLATE
     Route: 065
     Dates: start: 202003
  4. NILOTINIB [Suspect]
     Active Substance: NILOTINIB
     Indication: Product used for unknown indication
     Dosage: 400 MG, BID
     Route: 065
     Dates: start: 202106
  5. PONATINIB [Suspect]
     Active Substance: PONATINIB
     Indication: Product used for unknown indication
     Route: 065
     Dates: start: 202012

REACTIONS (2)
  - White blood cell count increased [Unknown]
  - Chronic myeloid leukaemia [Unknown]
